FAERS Safety Report 6893664-4 (Version None)
Quarter: 2010Q3

REPORT INFORMATION
  Report Type: 
  Country: None (occurrence: None)
  Receive Date: 20100731
  Receipt Date: 20091201
  Transmission Date: 20110219
  Serious: No
  Sender: FDA-Public Use
  Company Number: US-PFIZER INC-2009272299

PATIENT
  Sex: Male
  Weight: 97.5 kg

DRUGS (6)
  1. LIPITOR [Suspect]
     Indication: HYPERTENSION
     Dosage: 10 MG, 1X/DAY
     Route: 048
     Dates: start: 20040101
  2. LIPITOR [Suspect]
     Indication: BLOOD GLUCOSE INCREASED
  3. LIPITOR [Suspect]
     Indication: BLOOD CHOLESTEROL INCREASED
  4. LIPITOR [Suspect]
     Indication: BLOOD TRIGLYCERIDES INCREASED
  5. SYNTHROID [Concomitant]
     Indication: THYROID DISORDER
     Dosage: UNK
  6. VALSARTAN [Concomitant]
     Indication: HYPERTENSION
     Dosage: UNK

REACTIONS (1)
  - SCIATICA [None]
